FAERS Safety Report 20937955 (Version 1)
Quarter: 2022Q2

REPORT INFORMATION
  Report Type: Report from Study
  Country: US (occurrence: US)
  Receive Date: 20220609
  Receipt Date: 20220609
  Transmission Date: 20220721
  Serious: Yes (Other)
  Sender: FDA-Public Use
  Company Number: US-ALNYLAM PHARMACEUTICALS, INC.-ALN-2022-000849

PATIENT

DRUGS (1)
  1. ONPATTRO [Suspect]
     Active Substance: PATISIRAN SODIUM
     Indication: Hereditary neuropathic amyloidosis
     Dosage: UNK
     Route: 065
     Dates: start: 20181217

REACTIONS (5)
  - Ventricular tachycardia [Unknown]
  - Cardiac discomfort [Unknown]
  - Chest discomfort [Unknown]
  - Chest pain [Unknown]
  - Fluid retention [Unknown]

NARRATIVE: CASE EVENT DATE: 20220301
